FAERS Safety Report 5307785-0 (Version None)
Quarter: 2007Q2

REPORT INFORMATION
  Report Type: 
  Country: None (occurrence: None)
  Receive Date: 20070418
  Receipt Date: 20070402
  Transmission Date: 20071010
  Serious: Yes (Hospitalization)
  Sender: FDA-Public Use
  Company Number: ENC200700046

PATIENT
  Age: 22 Year
  Sex: Female
  Weight: 91.4 kg

DRUGS (7)
  1. ARGATROBAN [Suspect]
     Indication: HEPARIN-INDUCED THROMBOCYTOPENIA
     Dosage: 2 MCG/KG/MIN, WITH FREQUENT TITRATION, INTRAVENOUS
     Route: 042
     Dates: start: 20070325, end: 20070331
  2. ZYVOX [Suspect]
     Indication: URINARY TRACT INFECTION
     Dosage: 600 MG, BID Q12 HRS
     Dates: start: 20070327
  3. PEPCID [Concomitant]
  4. WARFARIN SODIUM [Concomitant]
  5. IMMUNOGLOBULIN (IMMUNOGLOBULIN) [Concomitant]
  6. SOLU-MEDROL [Concomitant]
  7. FRAGMIN (HEPARIN-FRACTION, SODIUM SLAT) [Concomitant]

REACTIONS (5)
  - ACTIVATED PARTIAL THROMBOPLASTIN TIME PROLONGED [None]
  - BLOOD PRESSURE INCREASED [None]
  - DEPRESSED LEVEL OF CONSCIOUSNESS [None]
  - DRUG INTERACTION [None]
  - HEART RATE DECREASED [None]
